FAERS Safety Report 18952175 (Version 1)
Quarter: 2021Q1

REPORT INFORMATION
  Report Type: Spontaneous
  Country: US (occurrence: US)
  Receive Date: 20210301
  Receipt Date: 20210301
  Transmission Date: 20210420
  Serious: No
  Sender: FDA-Public Use
  Company Number: US-SA-2021SA065137

PATIENT
  Age: 33 Year
  Sex: Female
  Weight: 62.59 kg

DRUGS (1)
  1. DUPIXENT [Suspect]
     Active Substance: DUPILUMAB
     Indication: DERMATITIS ATOPIC
     Dosage: 300 MG, QOW
     Route: 058
     Dates: start: 20200901

REACTIONS (5)
  - Condition aggravated [Recovering/Resolving]
  - Injection site pain [Unknown]
  - Injection site bruising [Recovering/Resolving]
  - Injection site pruritus [Recovered/Resolved]
  - Injection site discomfort [Unknown]

NARRATIVE: CASE EVENT DATE: 2020
